FAERS Safety Report 17552136 (Version 1)
Quarter: 2020Q1

REPORT INFORMATION
  Report Type: Spontaneous
  Country: US (occurrence: US)
  Receive Date: 20200317
  Receipt Date: 20200317
  Transmission Date: 20200409
  Serious: No
  Sender: FDA-Public Use
  Company Number: US-PERRIGO-19US007423

PATIENT
  Age: 77 Year
  Sex: Male
  Weight: 68.93 kg

DRUGS (2)
  1. NICOTINE POLACRILEX [Suspect]
     Active Substance: NICOTINE
     Dosage: 4 MG, SINGLE
     Route: 002
     Dates: start: 20190616, end: 20190616
  2. NICOTINE POLACRILEX [Suspect]
     Active Substance: NICOTINE
     Indication: SMOKING CESSATION THERAPY
     Dosage: 4 MG, EVERY 3 TO 4 HOURS, UP TO 3 TO 4 TIMES DAILY
     Route: 002
     Dates: start: 201906, end: 20190615

REACTIONS (2)
  - Oral pain [Recovered/Resolved]
  - Angina bullosa haemorrhagica [Recovering/Resolving]

NARRATIVE: CASE EVENT DATE: 20190616
